FAERS Safety Report 24628692 (Version 3)
Quarter: 2025Q1

REPORT INFORMATION
  Report Type: Spontaneous
  Country: NL (occurrence: NL)
  Receive Date: 20241117
  Receipt Date: 20250208
  Transmission Date: 20250408
  Serious: Yes (Death, Hospitalization, Other)
  Sender: VIIV
  Company Number: NL-VIIV HEALTHCARE-NL2024EME140080

PATIENT

DRUGS (5)
  1. VOCABRIA [Suspect]
     Active Substance: CABOTEGRAVIR SODIUM
     Indication: HIV infection
  2. VOCABRIA [Suspect]
     Active Substance: CABOTEGRAVIR SODIUM
  3. VOCABRIA [Suspect]
     Active Substance: CABOTEGRAVIR SODIUM
  4. RILPIVIRINE [Suspect]
     Active Substance: RILPIVIRINE
     Indication: HIV infection
  5. LENACAPAVIR [Suspect]
     Active Substance: LENACAPAVIR
     Indication: Product used for unknown indication

REACTIONS (8)
  - Multiple organ dysfunction syndrome [Fatal]
  - Pancreatitis [Not Recovered/Not Resolved]
  - Underweight [Unknown]
  - Virologic failure [Unknown]
  - Drug level decreased [Unknown]
  - Off label use [Unknown]
  - Product use in unapproved therapeutic environment [Unknown]
  - Labelled drug-drug interaction medication error [Unknown]
